FAERS Safety Report 4534246-9 (Version None)
Quarter: 2004Q4

REPORT INFORMATION
  Report Type: 
  Country: None (occurrence: None)
  Receive Date: 20041222
  Receipt Date: 20041215
  Transmission Date: 20050328
  Serious: Yes (Other)
  Sender: FDA-Public Use
  Company Number: US-BRISTOL-MYERS SQUIBB COMPANY-12796603

PATIENT
  Age: 54 Year
  Sex: Female
  Weight: 109 kg

DRUGS (6)
  1. ERBITUX [Suspect]
     Indication: COLON CANCER METASTATIC
     Dosage: 1ST INFUSION, 812 MG ORDERED, 500 MG RECEIVED BEFORE EVENT ONSET, ^ON HOLD^
     Route: 042
     Dates: start: 20041206, end: 20041206
  2. ERBITUX [Suspect]
     Indication: METASTASES TO LIVER
     Dosage: 1ST INFUSION, 812 MG ORDERED, 500 MG RECEIVED BEFORE EVENT ONSET, ^ON HOLD^
     Route: 042
     Dates: start: 20041206, end: 20041206
  3. COUMADIN [Concomitant]
  4. LASIX [Concomitant]
  5. POTASSIUM [Concomitant]
  6. PAIN MEDICATIONS [Concomitant]

REACTIONS (7)
  - BURNING SENSATION [None]
  - INFUSION RELATED REACTION [None]
  - RASH [None]
  - RESPIRATORY DISTRESS [None]
  - SKIN BLEEDING [None]
  - WHEEZING [None]
  - WOUND SECRETION [None]
